FAERS Safety Report 9562906 (Version 5)
Quarter: 2014Q2

REPORT INFORMATION
  Report Type: Report from Study
  Country: US (occurrence: US)
  Receive Date: 20130927
  Receipt Date: 20140509
  Transmission Date: 20141212
  Serious: Yes (Death, Hospitalization)
  Sender: FDA-Public Use
  Company Number: US-ACTELION-A-US2013-86173

PATIENT
  Age: 73 Year
  Sex: Female

DRUGS (3)
  1. TRACLEER [Suspect]
     Indication: PULMONARY ARTERIAL HYPERTENSION
     Dosage: UNK
     Route: 048
     Dates: start: 20130626
  2. ADCIRCA [Concomitant]
  3. COUMADIN [Concomitant]

REACTIONS (5)
  - Lung neoplasm malignant [Fatal]
  - Disease complication [Unknown]
  - Chemotherapy [Recovering/Resolving]
  - Radiotherapy [Recovering/Resolving]
  - Dyspnoea [Recovered/Resolved]
